FAERS Safety Report 19395400 (Version 4)
Quarter: 2021Q3

REPORT INFORMATION
  Report Type: Report from Study
  Country: US (occurrence: US)
  Receive Date: 20210609
  Receipt Date: 20210719
  Transmission Date: 20211014
  Serious: No
  Sender: FDA-Public Use
  Company Number: US-AGIOS-2106US02849

PATIENT

DRUGS (4)
  1. PREDNISONE. [Concomitant]
     Active Substance: PREDNISONE
  2. TIBSOVO [Suspect]
     Active Substance: IVOSIDENIB
     Indication: ACUTE MYELOID LEUKAEMIA
     Dosage: 250 MILLIGRAM, 2 TABLETS (500 MG),QD
     Route: 048
     Dates: start: 20210521
  3. METOPROLOL. [Concomitant]
     Active Substance: METOPROLOL
  4. TIBSOVO [Suspect]
     Active Substance: IVOSIDENIB
     Indication: ACUTE LEUKAEMIA
     Dosage: 250 MILLIGRAM, 2 TABLETS (500 MG),QD
     Route: 048
     Dates: start: 20210521

REACTIONS (11)
  - Abdominal discomfort [Unknown]
  - Increased appetite [Unknown]
  - Abdominal distension [Unknown]
  - Nausea [Unknown]
  - Asthenia [Unknown]
  - Blood test abnormal [Unknown]
  - Dyspepsia [Unknown]
  - Discomfort [Unknown]
  - Malaise [Unknown]
  - Blood potassium decreased [Unknown]
  - Decreased activity [Unknown]
